FAERS Safety Report 20100430 (Version 1)
Quarter: 2021Q4

REPORT INFORMATION
  Report Type: Spontaneous
  Country: FR (occurrence: FR)
  Receive Date: 20211123
  Receipt Date: 20211123
  Transmission Date: 20220303
  Serious: Yes (Hospitalization, Other)
  Sender: FDA-Public Use
  Company Number: FR-ABBVIE-21K-056-4171587-00

PATIENT
  Age: 66 Year
  Sex: Male

DRUGS (1)
  1. DEPAKOTE [Suspect]
     Active Substance: DIVALPROEX SODIUM
     Indication: Product used for unknown indication
     Dosage: TAKES 250 IN THE MORNING A 500 AT NOON AND 2-250 IN THE EVENING
     Route: 048

REACTIONS (2)
  - Fall [Unknown]
  - Monoplegia [Unknown]
